FAERS Safety Report 9869563 (Version 1)
Quarter: 2014Q1

REPORT INFORMATION
  Report Type: Spontaneous
  Country: US (occurrence: US)
  Receive Date: 20140205
  Receipt Date: 20140205
  Transmission Date: 20141002
  Serious: No
  Sender: FDA-Public Use
  Company Number: US-PFIZER INC-2014031074

PATIENT
  Age: 65 Year
  Sex: Female
  Weight: 95.24 kg

DRUGS (2)
  1. CYTOMEL [Suspect]
     Indication: HYPOTHYROIDISM
     Dosage: UNK
  2. LEVOTHYROXINE SODIUM [Suspect]
     Indication: HYPOTHYROIDISM
     Dosage: UNK
     Dates: start: 2013

REACTIONS (3)
  - Fatigue [Unknown]
  - Feeling abnormal [Unknown]
  - Weight increased [Unknown]
